FAERS Safety Report 7951154-1 (Version None)
Quarter: 2011Q4

REPORT INFORMATION
  Report Type: 
  Country: None (occurrence: None)
  Receive Date: 20111201
  Receipt Date: 20111118
  Transmission Date: 20120403
  Serious: Yes (Other)
  Sender: FDA-Public Use
  Company Number: CA-UCBSA-046177

PATIENT
  Age: 56 Year
  Sex: Female

DRUGS (6)
  1. CITALOPRAM [Concomitant]
  2. VALACYCLOVIR [Concomitant]
  3. CIMZIA [Suspect]
     Indication: RHEUMATOID ARTHRITIS
     Dosage: 400MG WKS-0-2-4 THEN 400
     Route: 058
     Dates: start: 20101110
  4. LYRICA [Concomitant]
  5. IBUPROFEN [Concomitant]
  6. ZOPICLONE [Concomitant]

REACTIONS (1)
  - ARTERIAL OCCLUSIVE DISEASE [None]
